FAERS Safety Report 19222619 (Version 2)
Quarter: 2021Q4

REPORT INFORMATION
  Report Type: Spontaneous
  Country: US (occurrence: US)
  Receive Date: 20210506
  Receipt Date: 20211108
  Transmission Date: 20220303
  Serious: Yes (Death, Other)
  Sender: FDA-Public Use
  Company Number: US-NOVOPROD-797546

PATIENT
  Age: 56 Year
  Sex: Male

DRUGS (1)
  1. VICTOZA [Suspect]
     Active Substance: LIRAGLUTIDE
     Indication: Product used for unknown indication
     Dosage: UNK
     Route: 058
     Dates: start: 20180725, end: 202101

REACTIONS (6)
  - Adenocarcinoma [Fatal]
  - Ascites [Unknown]
  - Confusional state [Unknown]
  - Delirium [Unknown]
  - Dementia [Unknown]
  - Pain [Unknown]

NARRATIVE: CASE EVENT DATE: 20210101
